FAERS Safety Report 10068665 (Version 1)
Quarter: 2014Q2

REPORT INFORMATION
  Report Type: Spontaneous
  Country: US (occurrence: US)
  Receive Date: 20140409
  Receipt Date: 20140409
  Transmission Date: 20141212
  Serious: Yes (Hospitalization)
  Sender: FDA-Public Use
  Company Number: US-ASTRAZENECA-2014SE22899

PATIENT
  Age: 53 Year
  Sex: Female

DRUGS (13)
  1. ATENOLOL [Suspect]
     Route: 065
  2. MORPHINE SULFATE [Suspect]
     Route: 065
  3. CEP-32496 [Suspect]
     Indication: NEOPLASM
     Route: 065
     Dates: start: 20130903, end: 20130913
  4. CEP-32496 [Suspect]
     Indication: NEOPLASM
     Route: 065
     Dates: start: 20131001
  5. DICYCLOVERINE HYDROCHLORIDE [Concomitant]
  6. ATORVASTATIN CALCIUM [Concomitant]
  7. ATROPINE SULFATE AND DIPHENOXYLATE HYDROCHLORIDE?DIPHENOXYLATE HYDROCH [Concomitant]
  8. LOSARTAN [Concomitant]
  9. PARACETAMOL AND HYDROCODONE BITARTRATE [Concomitant]
  10. POTASSIUM CHLORIDE [Concomitant]
  11. ENOXAPARIN [Concomitant]
  12. PANTOPRAZOLE [Concomitant]
  13. DOCUSATE SODIUM [Concomitant]

REACTIONS (4)
  - Abdominal pain [Recovering/Resolving]
  - Dehydration [Recovered/Resolved]
  - Nausea [Recovered/Resolved]
  - Vomiting [Recovered/Resolved]
